FAERS Safety Report 22984905 (Version 2)
Quarter: 2023Q4

REPORT INFORMATION
  Report Type: Report from Study
  Country: KR (occurrence: KR)
  Receive Date: 20230926
  Receipt Date: 20231008
  Transmission Date: 20240110
  Serious: Yes (Hospitalization)
  Sender: FDA-Public Use
  Company Number: KR-ABBVIE-5419958

PATIENT
  Age: 58 Year
  Sex: Male
  Weight: 39 kg

DRUGS (11)
  1. HUMIRA [Suspect]
     Active Substance: ADALIMUMAB
     Indication: Crohn^s disease
     Dosage: START DATE 2023/FORM STRENGTH: 40 MILLIGRAM
     Route: 058
     Dates: end: 20230814
  2. HUMIRA [Suspect]
     Active Substance: ADALIMUMAB
     Dosage: FORM STRENGTH: 40 MILLIGRAM
     Route: 058
     Dates: end: 20230626
  3. HUMIRA [Suspect]
     Active Substance: ADALIMUMAB
     Dosage: START DATE 2023/FORM STRENGTH: 40 MILLIGRAM
     Route: 058
     Dates: end: 20230912
  4. BIOFLOR [Concomitant]
     Indication: Gastrointestinal disorder
     Dosage: TIME INTERVAL: 0.33333333 DAYS: 1 PACK?250 POWDER
     Route: 048
     Dates: start: 2010
  5. FOLIC ACID [Concomitant]
     Active Substance: FOLIC ACID
     Indication: Vitamin supplementation
     Dosage: SINIL FOLIC ACID
     Route: 048
     Dates: start: 2010
  6. K CAB [Concomitant]
     Indication: Peptic ulcer
     Dosage: 50 MG
     Route: 048
     Dates: start: 2010
  7. LOPAINE [Concomitant]
     Indication: Gastrointestinal disorder
     Route: 048
     Dates: start: 2010
  8. PENTASA [Concomitant]
     Active Substance: MESALAMINE
     Indication: Gastrointestinal disorder
     Route: 048
     Dates: start: 2010
  9. HEMONIA [Concomitant]
     Indication: Mineral supplementation
     Route: 048
     Dates: start: 2010
  10. PROBIOTICS NOS [Concomitant]
     Active Substance: PROBIOTICS NOS
     Indication: Gastrointestinal disorder
     Dosage: TIME INTERVAL: 0.33333333 DAYS
     Route: 048
     Dates: start: 2010
  11. FOTAGEL [Concomitant]
     Indication: Gastrointestinal disorder
     Dosage: TIME INTERVAL: 0.33333333 DAYS: 2 PACK
     Route: 048
     Dates: start: 2010

REACTIONS (4)
  - Pneumocystis jirovecii pneumonia [Recovered/Resolved]
  - Renal function test abnormal [Recovered/Resolved]
  - Inflammation [Recovering/Resolving]
  - Purulence [Recovering/Resolving]

NARRATIVE: CASE EVENT DATE: 20230626
